FAERS Safety Report 21131495 (Version 1)
Quarter: 2022Q3

REPORT INFORMATION
  Report Type: Spontaneous
  Country: JP (occurrence: JP)
  Receive Date: 20220726
  Receipt Date: 20220726
  Transmission Date: 20221027
  Serious: No
  Sender: FDA-Public Use
  Company Number: JP-GSKNCCC-Case-01538275_AE-60407

PATIENT

DRUGS (2)
  1. SOTROVIMAB [Suspect]
     Active Substance: SOTROVIMAB
     Dosage: ADMINISTER  HALF THE DOSE
     Route: 041
  2. SOTROVIMAB [Suspect]
     Active Substance: SOTROVIMAB
     Dosage: ADMINISTER ALL REMAINING DOSE
     Route: 041

REACTIONS (2)
  - Pain [Unknown]
  - Hypoaesthesia [Unknown]
